FAERS Safety Report 9482967 (Version 2)
Quarter: 2013Q3

REPORT INFORMATION
  Report Type: Spontaneous
  Country: DE (occurrence: DE)
  Receive Date: 20130828
  Receipt Date: 20130828
  Transmission Date: 20140515
  Serious: Yes (Hospitalization, Other)
  Sender: FDA-Public Use
  Company Number: DE-ACTELION-A-CH2013-83471

PATIENT
  Age: 55 Year
  Sex: Female

DRUGS (5)
  1. TRACLEER [Suspect]
     Indication: SYSTEMIC SCLEROSIS
     Dosage: UNK
     Route: 048
     Dates: start: 2008
  2. TRACLEER [Suspect]
     Dosage: 62.5 MG, BID
     Route: 048
  3. PANTOPRAZOL [Concomitant]
     Dosage: 20 MG, UNK
  4. ASS [Concomitant]
     Dosage: 100 UNK, UNK
  5. OLMETEC [Concomitant]
     Dosage: 10 MG, UNK

REACTIONS (5)
  - Major depression [Not Recovered/Not Resolved]
  - Sleep disorder [Not Recovered/Not Resolved]
  - Eating disorder [Not Recovered/Not Resolved]
  - Agitated depression [Not Recovered/Not Resolved]
  - Autism [Not Recovered/Not Resolved]
